FAERS Safety Report 6376400-X (Version None)
Quarter: 2009Q3

REPORT INFORMATION
  Report Type: 
  Country: None (occurrence: None)
  Receive Date: 20090925
  Receipt Date: 20090923
  Transmission Date: 20100115
  Serious: Yes (Other)
  Sender: FDA-Public Use
  Company Number: CN-JNJFOC-20090905483

PATIENT
  Age: 13 Month
  Sex: Female

DRUGS (2)
  1. ANTUSS INFANTS' DECONGESTANT + COUGH [Suspect]
     Indication: NASOPHARYNGITIS
  2. IBUPROFEN [Concomitant]
     Indication: PYREXIA

REACTIONS (2)
  - ACCIDENTAL OVERDOSE [None]
  - VOMITING [None]
